FAERS Safety Report 11292773 (Version 1)
Quarter: 2015Q2

REPORT INFORMATION
  Report Type: Spontaneous
  Country: US (occurrence: None)
  Receive Date: 20150623
  Receipt Date: 20150623
  Transmission Date: 20150821
  Serious: Yes (Other)
  Sender: FDA-Public Use
  Company Number: RB-69235-2014

PATIENT
  Sex: Female

DRUGS (1)
  1. GUAIFENESIN/DEXTROMETHORPHAN (RB (RECKITT BENCKISER)) [Suspect]
     Active Substance: DEXTROMETHORPHAN\GUAIFENESIN
     Indication: PRODUCT USED FOR UNKNOWN INDICATION
     Dosage: (1200 MG TOTAL, TOOK ONE DOSE ON 25/SEP/2014 UNKNOWN)
     Dates: start: 20140925

REACTIONS (6)
  - Nausea [None]
  - Confusional state [None]
  - Abdominal pain upper [None]
  - Headache [None]
  - Somnolence [None]
  - Nervousness [None]

NARRATIVE: CASE EVENT DATE: 20140925
